FAERS Safety Report 8409176-2 (Version None)
Quarter: 2012Q2

REPORT INFORMATION
  Report Type: 
  Country: None (occurrence: None)
  Receive Date: 20120604
  Receipt Date: 20120524
  Transmission Date: 20120825
  Serious: Yes (Hospitalization, Other)
  Sender: FDA-Public Use
  Company Number: US-BAXTER-2012BAX005986

PATIENT
  Sex: Female

DRUGS (1)
  1. DIANEAL LOW CALCIUM W/ DEXTROSE 1.5% [Suspect]
     Indication: PERITONEAL DIALYSIS
     Route: 033
     Dates: start: 20120216

REACTIONS (4)
  - ABDOMINAL PAIN [None]
  - ULCER [None]
  - GASTROINTESTINAL HAEMORRHAGE [None]
  - CONSTIPATION [None]
